FAERS Safety Report 8187478-5 (Version None)
Quarter: 2012Q1

REPORT INFORMATION
  Report Type: 
  Country: None (occurrence: None)
  Receive Date: 20120302
  Receipt Date: 20120229
  Transmission Date: 20120608
  Serious: Yes (Hospitalization)
  Sender: FDA-Public Use
  Company Number: SP05486

PATIENT
  Age: 33 Year
  Sex: Female

DRUGS (1)
  1. OSMOPREP [Suspect]
     Indication: BOWEL PREPARATION
     Dosage: (32 DOSAGE FORMS), ORAL
     Route: 048
     Dates: start: 20111211, end: 20111211

REACTIONS (9)
  - VOMITING [None]
  - LOSS OF CONSCIOUSNESS [None]
  - HYPOCALCAEMIA [None]
  - TREMOR [None]
  - MALAISE [None]
  - WATER INTOXICATION [None]
  - DIZZINESS [None]
  - HYPONATRAEMIA [None]
  - HYPOKALAEMIA [None]
